FAERS Safety Report 7443238-1 (Version None)
Quarter: 2011Q2

REPORT INFORMATION
  Report Type: 
  Country: None (occurrence: None)
  Receive Date: 20110428
  Receipt Date: 20110419
  Transmission Date: 20111010
  Serious: Yes (Death, Disabling)
  Sender: FDA-Public Use
  Company Number: B0714911A

PATIENT
  Sex: Male
  Weight: 10 kg

DRUGS (12)
  1. GASTER [Concomitant]
     Dosage: 5MG PER DAY
     Route: 042
     Dates: end: 20100412
  2. FLUDARA [Suspect]
     Indication: CORD BLOOD TRANSPLANT THERAPY
     Dosage: 30MGM2 PER DAY
     Route: 042
     Dates: start: 20100310, end: 20100314
  3. THYMOGLOBULIN [Suspect]
     Indication: CORD BLOOD TRANSPLANT THERAPY
     Dosage: 2.5MGM2 PER DAY
     Route: 042
     Dates: start: 20100311, end: 20100315
  4. CYCLOSPORINE [Concomitant]
     Indication: IMMUNOSUPPRESSION
     Dosage: 20MG PER DAY
     Route: 065
     Dates: start: 20100326, end: 20100517
  5. NEO-MINOPHAGEN-C [Concomitant]
     Dosage: 20ML PER DAY
     Route: 042
     Dates: end: 20100315
  6. TACROLIMUS HYDRATE [Suspect]
     Indication: IMMUNOSUPPRESSION
     Dosage: .0237MGK PER DAY
     Route: 065
     Dates: start: 20100316, end: 20100326
  7. GRAN [Concomitant]
     Dates: start: 20100324, end: 20100331
  8. SOL-MELCORT [Concomitant]
     Dosage: 22MG PER DAY
     Route: 042
     Dates: end: 20100315
  9. ALKERAN [Suspect]
     Indication: CORD BLOOD TRANSPLANT THERAPY
     Dosage: 70MGM2 PER DAY
     Route: 042
     Dates: start: 20100311, end: 20100312
  10. KYTRIL [Concomitant]
     Dosage: .9MG PER DAY
     Route: 042
     Dates: end: 20100322
  11. VICCLOX [Concomitant]
     Dosage: 50MG PER DAY
     Route: 042
     Dates: end: 20100421
  12. FUNGUARD [Concomitant]
     Dosage: 30MG PER DAY
     Route: 042
     Dates: end: 20100427

REACTIONS (5)
  - SEPSIS [None]
  - C-REACTIVE PROTEIN INCREASED [None]
  - PYREXIA [None]
  - CONVULSION [None]
  - ENDOTOXIC SHOCK [None]
